FAERS Safety Report 8203439-1 (Version None)
Quarter: 2012Q1

REPORT INFORMATION
  Report Type: 
  Country: None (occurrence: None)
  Receive Date: 20120313
  Receipt Date: 20120229
  Transmission Date: 20120608
  Serious: Yes (Other)
  Sender: FDA-Public Use
  Company Number: BE-AMGEN-BELSP2012011987

PATIENT
  Age: 68 Year
  Sex: Male

DRUGS (5)
  1. ASPIRIN [Concomitant]
     Dosage: UNK
     Dates: end: 20120101
  2. ALLOPURINOL [Concomitant]
     Indication: RENAL IMPAIRMENT
     Dosage: UNK
  3. REMERGON [Concomitant]
     Indication: SLEEP DISORDER
     Dosage: 30 MG, 1X/DAY
     Route: 048
  4. COZAAR [Concomitant]
     Indication: HYPERTENSION
     Dosage: 75 MG, 1X/DAY
     Route: 048
  5. ENBREL [Suspect]
     Indication: PSORIASIS
     Dosage: 50 MG, WEEKLY
     Route: 058
     Dates: start: 20111129

REACTIONS (3)
  - SUBCUTANEOUS HAEMATOMA [None]
  - RED BLOOD CELL COUNT ABNORMAL [None]
  - HAEMATOCRIT ABNORMAL [None]
